FAERS Safety Report 4381318-8 (Version None)
Quarter: 2004Q2

REPORT INFORMATION
  Report Type: 
  Country: None (occurrence: None)
  Receive Date: 20040617
  Receipt Date: 20040617
  Transmission Date: 20050107
  Serious: Yes (Other)
  Sender: FDA-Public Use
  Company Number: None

PATIENT
  Sex: Male
  Weight: 73.9363 kg

DRUGS (1)
  1. NEFAZODONE 250 MG TWO DOSES QHS [Suspect]
     Indication: DEPRESSION
     Dosage: 2 DOSES QHS PO
     Route: 048

REACTIONS (2)
  - NAUSEA [None]
  - VOMITING [None]
